FAERS Safety Report 4296770-6 (Version None)
Quarter: 2004Q1

REPORT INFORMATION
  Report Type: 
  Country: None (occurrence: None)
  Receive Date: 20040217
  Receipt Date: 20031219
  Transmission Date: 20041129
  Serious: Yes (Hospitalization, Other)
  Sender: FDA-Public Use
  Company Number: PHFR2003GB05012

PATIENT
  Age: 29 Year
  Sex: Male
  Weight: 74 kg

DRUGS (7)
  1. CLOZARIL [Suspect]
     Indication: SCHIZOPHRENIA
     Dosage: 12.5 MG, QD
     Route: 048
     Dates: start: 20031208
  2. CLOZARIL [Suspect]
     Dosage: 225 MG/DAY
     Route: 048
     Dates: end: 20031219
  3. CLOZARIL [Suspect]
     Dosage: 12.5 MG, QD
     Route: 048
     Dates: start: 20040107, end: 20040111
  4. RISPERIDONE [Concomitant]
     Indication: SCHIZOPHRENIA
     Dosage: 6 MG/DAY
     Route: 048
     Dates: start: 20031205, end: 20031208
  5. RISPERIDONE [Concomitant]
     Dosage: 4 MG/DAY
     Dates: start: 20031209, end: 20031215
  6. RISPERIDONE [Concomitant]
     Dosage: 3 MG/DAY
     Route: 048
     Dates: start: 20031216, end: 20031218
  7. RISPERIDONE [Concomitant]
     Dosage: 2 MG/DAY
     Route: 048
     Dates: start: 20031219, end: 20040116

REACTIONS (9)
  - ARTHRALGIA [None]
  - HYPERHIDROSIS [None]
  - HYPERSENSITIVITY [None]
  - INFLUENZA LIKE ILLNESS [None]
  - MALAISE [None]
  - MYALGIA [None]
  - PYREXIA [None]
  - RHINITIS [None]
  - TACHYCARDIA [None]
